FAERS Safety Report 7549366-4 (Version None)
Quarter: 2011Q2

REPORT INFORMATION
  Report Type: 
  Country: None (occurrence: None)
  Receive Date: 20110615
  Receipt Date: 20030424
  Transmission Date: 20111010
  Serious: Yes (Hospitalization, Other)
  Sender: FDA-Public Use
  Company Number: PHHO2003JP05388

PATIENT
  Sex: Female
  Weight: 54 kg

DRUGS (3)
  1. DIOVAN [Suspect]
     Indication: HYPERTENSION
     Dosage: 80 MG, QD
     Route: 048
     Dates: start: 20011002
  2. HERBESSOR R [Concomitant]
     Indication: ESSENTIAL HYPERTENSION
     Dosage: 100 MG, UNK
     Route: 048
     Dates: start: 20011210
  3. METOPROLOL TARTRATE [Concomitant]
     Indication: ESSENTIAL HYPERTENSION
     Dosage: 120 MG, UNK
     Route: 048
     Dates: start: 20010707, end: 20011126

REACTIONS (1)
  - OVARIAN CANCER [None]
